FAERS Safety Report 5277376-9 (Version None)
Quarter: 2007Q1

REPORT INFORMATION
  Report Type: 
  Country: None (occurrence: None)
  Receive Date: 20070327
  Receipt Date: 20070315
  Transmission Date: 20070707
  Serious: Yes (Hospitalization)
  Sender: FDA-Public Use
  Company Number: HQWYE952216MAR07

PATIENT
  Age: 59 Year
  Sex: Female

DRUGS (13)
  1. INIPOMP [Suspect]
     Route: 042
     Dates: start: 20061017, end: 20061018
  2. IOHEXOL [Suspect]
     Indication: COMPUTERISED TOMOGRAM
     Dosage: 100 ML EVERY 1 TOT
     Route: 042
     Dates: start: 20061019, end: 20061019
  3. DOMPERIDONE [Concomitant]
     Route: 048
     Dates: start: 20061019, end: 20061116
  4. LYSANXIA [Concomitant]
     Route: 048
     Dates: end: 20061106
  5. LYSANXIA [Concomitant]
     Route: 048
     Dates: start: 20061106
  6. TEGELINE [Suspect]
     Indication: THROMBOCYTOPENIA
     Route: 042
     Dates: start: 20061019, end: 20061021
  7. DOLIPRANE [Concomitant]
     Route: 048
     Dates: start: 20061018, end: 20061117
  8. DESLORATADINE [Concomitant]
     Route: 048
     Dates: start: 20061018, end: 20061019
  9. FORLAX [Concomitant]
     Route: 048
     Dates: start: 20061023
  10. TRAMADOL HCL [Concomitant]
     Route: 048
     Dates: start: 20061026, end: 20061030
  11. DI-ANTALVIC [Concomitant]
     Route: 048
     Dates: start: 20061031, end: 20061106
  12. INIPOMP [Suspect]
     Route: 048
     Dates: start: 20061019
  13. PROZAC [Concomitant]
     Route: 048

REACTIONS (1)
  - RENAL FAILURE [None]
